FAERS Safety Report 5053136-9 (Version None)
Quarter: 2006Q3

REPORT INFORMATION
  Report Type: 
  Country: None (occurrence: None)
  Receive Date: 20060711
  Receipt Date: 20060630
  Transmission Date: 20061208
  Serious: Yes (Other)
  Sender: FDA-Public Use
  Company Number: DEWYE922830JUN06

PATIENT
  Sex: Female

DRUGS (2)
  1. TYGACIL [Suspect]
     Indication: BACTERIAL INFECTION
  2. CYCLOSPORINE [Concomitant]

REACTIONS (2)
  - CONVULSION [None]
  - PATHOGEN RESISTANCE [None]
